FAERS Safety Report 6935659-8 (Version None)
Quarter: 2010Q3

REPORT INFORMATION
  Report Type: 
  Country: None (occurrence: None)
  Receive Date: 20100823
  Receipt Date: 20100812
  Transmission Date: 20110219
  Serious: Yes (Hospitalization)
  Sender: FDA-Public Use
  Company Number: US-JNJFOC-20100805205

PATIENT
  Sex: Female

DRUGS (12)
  1. FENTANYL CITRATE [Suspect]
     Indication: PAIN MANAGEMENT
     Route: 062
  2. FENTANYL CITRATE [Suspect]
     Route: 062
  3. FENTANYL CITRATE [Suspect]
     Route: 062
  4. FENTANYL CITRATE [Suspect]
     Indication: PAIN MANAGEMENT
     Route: 062
  5. ACTAVIS FENTANYL TRANSDEMAL SYSTEM [Suspect]
     Indication: PAIN MANAGEMENT
     Route: 062
  6. FENTANYL CITRATE [Suspect]
     Dosage: NDC# 0781-7243-55
     Route: 062
  7. VICODIN [Concomitant]
     Indication: BREAKTHROUGH PAIN
     Dosage: 5/325 MG
     Route: 048
  8. PERCOCET [Concomitant]
     Indication: BREAKTHROUGH PAIN
     Route: 048
  9. CRIXIVAN [Concomitant]
     Indication: HIV TEST POSITIVE
     Route: 048
  10. ZERIT [Concomitant]
     Indication: HIV TEST POSITIVE
     Route: 048
  11. VIDEX EC [Concomitant]
     Indication: HIV TEST POSITIVE
     Route: 048
  12. DUONEB [Concomitant]
     Indication: BRONCHITIS
     Route: 045

REACTIONS (6)
  - FALL [None]
  - HERPES VIRUS INFECTION [None]
  - HYPERTENSION [None]
  - NEOPLASM [None]
  - PAIN [None]
  - THERAPEUTIC RESPONSE DECREASED [None]
